FAERS Safety Report 25858481 (Version 1)
Quarter: 2025Q3

REPORT INFORMATION
  Report Type: Spontaneous
  Country: US (occurrence: US)
  Receive Date: 20250929
  Receipt Date: 20250929
  Transmission Date: 20251020
  Serious: Yes (Other)
  Sender: COOPERSURGICAL
  Company Number: US-COOPERSURGICAL, INC.-2025CPS006911

PATIENT
  Age: 45 Year
  Sex: Female
  Weight: 99.773 kg

DRUGS (1)
  1. PARAGARD T 380A [Suspect]
     Active Substance: COPPER
     Indication: Contraception
     Route: 015
     Dates: start: 20100715

REACTIONS (16)
  - Uterine leiomyoma calcification [Unknown]
  - Uterine enlargement [Unknown]
  - Device breakage [Not Recovered/Not Resolved]
  - Foreign body in reproductive tract [Not Recovered/Not Resolved]
  - Complication of device removal [Not Recovered/Not Resolved]
  - Iron deficiency anaemia [Unknown]
  - Vaginal discharge [Unknown]
  - Vulvovaginitis trichomonal [Unknown]
  - Pelvic pain [Recovered/Resolved]
  - Device use issue [Not Recovered/Not Resolved]
  - Off label use [Unknown]
  - Heavy menstrual bleeding [Unknown]
  - Menstruation irregular [Unknown]
  - Bacterial vaginosis [Unknown]
  - Device dislocation [Not Recovered/Not Resolved]
  - Abdominal pain [Unknown]

NARRATIVE: CASE EVENT DATE: 20100923
